FAERS Safety Report 17101539 (Version 1)
Quarter: 2019Q4

REPORT INFORMATION
  Report Type: Spontaneous
  Country: ZA (occurrence: ZA)
  Receive Date: 20191202
  Receipt Date: 20191202
  Transmission Date: 20200122
  Serious: Yes (Other)
  Sender: FDA-Public Use
  Company Number: ZA-MYLANLABS-2019M1118810

PATIENT
  Age: 29 Year
  Sex: Female
  Weight: 74 kg

DRUGS (1)
  1. HYAN [Suspect]
     Active Substance: LEVONORGESTREL
     Indication: PROPHYLAXIS
     Dosage: 1 DOSAGE FORM, QD
     Route: 048
     Dates: start: 20191001, end: 20191002

REACTIONS (2)
  - Maternal exposure during breast feeding [Unknown]
  - Suppressed lactation [Recovered/Resolved]

NARRATIVE: CASE EVENT DATE: 201910
